FAERS Safety Report 6904393-2 (Version None)
Quarter: 2010Q3

REPORT INFORMATION
  Report Type: 
  Country: None (occurrence: None)
  Receive Date: 20100804
  Receipt Date: 20090508
  Transmission Date: 20110219
  Serious: Yes (Other)
  Sender: FDA-Public Use
  Company Number: US-PFIZER INC-2009172786

PATIENT
  Sex: Female
  Weight: 46.259 kg

DRUGS (4)
  1. LYRICA [Suspect]
     Indication: BACK PAIN
     Dosage: 50 MG, 1X/DAY
     Dates: start: 20081126
  2. ALL OTHER THERAPEUTIC PRODUCTS [Suspect]
     Indication: MYELOFIBROSIS
     Dosage: UNK
  3. ANTIHYPERTENSIVES [Concomitant]
     Dosage: UNK
  4. TYLENOL [Concomitant]

REACTIONS (2)
  - HAEMATOCRIT DECREASED [None]
  - PLATELET COUNT DECREASED [None]
